FAERS Safety Report 25271452 (Version 3)
Quarter: 2025Q4

REPORT INFORMATION
  Report Type: Spontaneous
  Country: US (occurrence: US)
  Receive Date: 20250506
  Receipt Date: 20251110
  Transmission Date: 20260118
  Serious: No
  Sender: ROCHE
  Company Number: US-ROCHE-10000271208

PATIENT
  Sex: Female

DRUGS (2)
  1. XOLAIR PFS [Suspect]
     Active Substance: OMALIZUMAB
     Indication: Idiopathic urticaria
     Route: 058
     Dates: start: 202502
  2. XOLAIR PFS [Suspect]
     Active Substance: OMALIZUMAB

REACTIONS (4)
  - Idiopathic urticaria [Unknown]
  - Illness [Unknown]
  - Stress [Unknown]
  - Rash [Unknown]

NARRATIVE: CASE EVENT DATE: 20250426
